FAERS Safety Report 6089761-6 (Version None)
Quarter: 2009Q1

REPORT INFORMATION
  Report Type: 
  Country: None (occurrence: None)
  Receive Date: 20090224
  Receipt Date: 20090210
  Transmission Date: 20090719
  Serious: Yes (Other)
  Sender: FDA-Public Use
  Company Number: IR-GENENTECH-277479

PATIENT
  Age: 50 Year

DRUGS (3)
  1. MABTHERA [Suspect]
     Indication: LYMPHOMA
     Route: 065
  2. FLUDARABINE PHOSPHATE [Concomitant]
     Indication: DRUG USE FOR UNKNOWN INDICATION
  3. ENDOXAN [Concomitant]
     Indication: DRUG USE FOR UNKNOWN INDICATION

REACTIONS (2)
  - DISABILITY [None]
  - MUSCULAR WEAKNESS [None]
